FAERS Safety Report 14927244 (Version 1)
Quarter: 2018Q2

REPORT INFORMATION
  Report Type: Spontaneous
  Country: US (occurrence: US)
  Receive Date: 20180523
  Receipt Date: 20180523
  Transmission Date: 20180711
  Serious: No
  Sender: FDA-Public Use
  Company Number: US-PFIZER INC-2018091356

PATIENT
  Sex: Female

DRUGS (11)
  1. TRAZODONE [Concomitant]
     Active Substance: TRAZODONE HYDROCHLORIDE
     Dosage: UNK
  2. VENLAFAXINE [Concomitant]
     Active Substance: VENLAFAXINE HYDROCHLORIDE
     Dosage: UNK
  3. LEVEMIR [Concomitant]
     Active Substance: INSULIN DETEMIR
     Dosage: UNK
  4. LISINOPRIL. [Concomitant]
     Active Substance: LISINOPRIL
     Dosage: UNK
  5. TAXOTERE [Suspect]
     Active Substance: DOCETAXEL
     Dosage: UNK
     Dates: start: 201209
  6. GLIPIZIDE. [Concomitant]
     Active Substance: GLIPIZIDE
     Dosage: UNK
  7. HYDROCHLOROTHIAZIDE. [Concomitant]
     Active Substance: HYDROCHLOROTHIAZIDE
  8. LAMICTAL [Concomitant]
     Active Substance: LAMOTRIGINE
     Dosage: UNK
  9. DOCETAXEL. [Suspect]
     Active Substance: DOCETAXEL
     Indication: BREAST CANCER FEMALE
     Dosage: 20 ML, WEEKLY (4 CYCLES)
     Dates: start: 20121115, end: 20130102
  10. DOCETAXEL. [Suspect]
     Active Substance: DOCETAXEL
     Dosage: UNK
     Dates: start: 201209
  11. TAXOTERE [Suspect]
     Active Substance: DOCETAXEL
     Indication: BREAST CANCER FEMALE
     Dosage: 20 ML, WEEKLY (4 CYCLES)
     Dates: start: 20121115, end: 20130102

REACTIONS (5)
  - Hair texture abnormal [Unknown]
  - Madarosis [Unknown]
  - Hair disorder [Unknown]
  - Alopecia [Not Recovered/Not Resolved]
  - Hair colour changes [Unknown]
